FAERS Safety Report 16056684 (Version 2)
Quarter: 2019Q1

REPORT INFORMATION
  Report Type: Spontaneous
  Country: JP (occurrence: JP)
  Receive Date: 20190311
  Receipt Date: 20190312
  Transmission Date: 20190418
  Serious: Yes (Hospitalization)
  Sender: FDA-Public Use
  Company Number: PHHY2019JP045745

PATIENT
  Age: 51 Year
  Sex: Female

DRUGS (2)
  1. METHYLPREDNISOLONE. [Suspect]
     Active Substance: METHYLPREDNISOLONE
     Indication: NEUROMYELITIS OPTICA SPECTRUM DISORDER
     Dosage: 2000 MG, QD
     Route: 042
  2. METHYLPREDNISOLONE. [Suspect]
     Active Substance: METHYLPREDNISOLONE
     Dosage: 1000 UNK, UNK
     Route: 042

REACTIONS (15)
  - Cerebellar ataxia [Recovering/Resolving]
  - Dysaesthesia [Unknown]
  - Blood pressure increased [Recovering/Resolving]
  - Prothrombin time shortened [Unknown]
  - Product use in unapproved indication [Unknown]
  - Neuromyelitis optica spectrum disorder [Recovering/Resolving]
  - VIth nerve paralysis [Unknown]
  - Brain stem haemorrhage [Unknown]
  - Activated partial thromboplastin time shortened [Unknown]
  - Blindness unilateral [Recovering/Resolving]
  - Dysarthria [Unknown]
  - Muscular weakness [Unknown]
  - Sensory disturbance [Recovering/Resolving]
  - Posterior reversible encephalopathy syndrome [Recovering/Resolving]
  - Headache [Recovering/Resolving]
